FAERS Safety Report 8590903-9 (Version None)
Quarter: 2012Q3

REPORT INFORMATION
  Report Type: 
  Country: None (occurrence: None)
  Receive Date: 20120813
  Receipt Date: 20120804
  Transmission Date: 20120928
  Serious: Yes (Death)
  Sender: FDA-Public Use
  Company Number: US-BAXTER-2012BAX013579

PATIENT
  Sex: Male

DRUGS (6)
  1. DIANEAL [Suspect]
     Route: 033
  2. DIANEAL [Suspect]
     Route: 033
     Dates: end: 20120315
  3. DIANEAL [Suspect]
     Route: 033
     Dates: end: 20120315
  4. EXTRANEAL [Suspect]
     Route: 033
  5. EXTRANEAL [Suspect]
     Route: 033
     Dates: end: 20120315
  6. DIANEAL [Suspect]
     Route: 033

REACTIONS (2)
  - CARDIAC DISORDER [None]
  - MYOCARDIAL INFARCTION [None]
